FAERS Safety Report 24709508 (Version 3)
Quarter: 2025Q1

REPORT INFORMATION
  Report Type: Report from Study
  Country: US (occurrence: US)
  Receive Date: 20241209
  Receipt Date: 20250123
  Transmission Date: 20250409
  Serious: Yes (Death)
  Sender: ROCHE
  Company Number: US-ROCHE-10000151029

PATIENT
  Age: 87 Year
  Sex: Female

DRUGS (2)
  1. ESBRIET [Suspect]
     Active Substance: PIRFENIDONE
     Indication: Idiopathic pulmonary fibrosis
     Dosage: TAKE 1 TABLET BY MOUTH 3 TIMES A DAY AT THE SAME TIMES EACH DAY
     Route: 048
     Dates: start: 202205
  2. ESBRIET [Suspect]
     Active Substance: PIRFENIDONE
     Route: 065

REACTIONS (1)
  - Death [Fatal]

NARRATIVE: CASE EVENT DATE: 20241123
